FAERS Safety Report 4349460-5 (Version None)
Quarter: 2004Q2

REPORT INFORMATION
  Report Type: 
  Country: None (occurrence: None)
  Receive Date: 20040426
  Receipt Date: 20040414
  Transmission Date: 20050107
  Serious: Yes (Hospitalization)
  Sender: FDA-Public Use
  Company Number: 2004AP02246

PATIENT
  Age: 51 Year
  Sex: Female
  Weight: 70 kg

DRUGS (3)
  1. ZOLADEX [Suspect]
     Indication: BREAST CANCER
     Dosage: 3.6 MG Q4WK SQ
     Route: 058
     Dates: start: 20040218
  2. NOLVADEX [Suspect]
     Indication: BREAST CANCER
     Dosage: 20  MG DAILY PO
     Route: 048
     Dates: start: 20040204, end: 20040414
  3. RADIATION THERAPY [Concomitant]

REACTIONS (2)
  - BLOOD PRESSURE INCREASED [None]
  - HEPATITIS ACUTE [None]
